FAERS Safety Report 4417165-8 (Version None)
Quarter: 2004Q3

REPORT INFORMATION
  Report Type: 
  Country: None (occurrence: None)
  Receive Date: 20040806
  Receipt Date: 20040218
  Transmission Date: 20050211
  Serious: No
  Sender: FDA-Public Use
  Company Number: IN-MERCK-0402USA01493B1

PATIENT
  Sex: Male
  Weight: 2 kg

DRUGS (3)
  1. DIGOXIN [Concomitant]
     Dates: start: 20000901
  2. FUROSEMIDE [Concomitant]
     Dates: start: 20000901
  3. COZAAR [Suspect]
     Dates: start: 20000901

REACTIONS (5)
  - FOOD INTOLERANCE [None]
  - OLIGURIA [None]
  - PREMATURE BABY [None]
  - SKULL MALFORMATION [None]
  - SMALL FOR DATES BABY [None]
